FAERS Safety Report 4454647-7 (Version None)
Quarter: 2004Q3

REPORT INFORMATION
  Report Type: 
  Country: None (occurrence: None)
  Receive Date: 20040826
  Receipt Date: 20040427
  Transmission Date: 20050211
  Serious: No
  Sender: FDA-Public Use
  Company Number: 236599

PATIENT
  Age: 68 Year
  Sex: Female

DRUGS (6)
  1. NOVOLIN N (INSULIN HUMAN) SUSPENSION FOR INJECTION, 100 IU/ML [Suspect]
     Indication: DIABETES MELLITUS INSULIN-DEPENDENT
     Dosage: 15IU, SUBCUTANEOUS
     Route: 058
     Dates: end: 20040427
  2. NOVOLIN R [Suspect]
     Indication: DIABETES MELLITUS INSULIN-DEPENDENT
     Dosage: 3 IU, SUBCUTANEOUS
     Route: 058
     Dates: end: 20040427
  3. TRAVATAN (TRAVOPROST) [Concomitant]
  4. COSOPT [Concomitant]
  5. VITAMINS NOS (VITAMINS NOS) [Concomitant]
  6. LISINOPRIL [Concomitant]

REACTIONS (1)
  - BLOOD GLUCOSE DECREASED [None]
